FAERS Safety Report 24573354 (Version 2)
Quarter: 2024Q4

REPORT INFORMATION
  Report Type: Spontaneous
  Country: US (occurrence: US)
  Receive Date: 20241101
  Receipt Date: 20241129
  Transmission Date: 20250115
  Serious: No
  Sender: NEUROCRINE BIOSCIENCES
  Company Number: US-NEUROCRINE BIOSCIENCES INC.-2024NBI10535

PATIENT
  Age: 50 Year
  Sex: Female

DRUGS (7)
  1. INGREZZA [Suspect]
     Active Substance: VALBENAZINE
     Indication: Tardive dyskinesia
     Dosage: 80 MILLIGRAM, QD
     Route: 048
     Dates: end: 20241018
  2. VYVANSE [Concomitant]
     Active Substance: LISDEXAMFETAMINE DIMESYLATE
     Indication: Attention deficit hyperactivity disorder
     Dosage: 60 MILLIGRAM
  3. BUSPAR [Concomitant]
     Active Substance: BUSPIRONE HYDROCHLORIDE
     Indication: Anxiety
     Dosage: 30 MILLIGRAM, BID
  4. GABAPENTIN [Concomitant]
     Active Substance: GABAPENTIN
     Indication: Anxiety
     Dosage: 400 MILLIGRAM, BID
  5. GABAPENTIN [Concomitant]
     Active Substance: GABAPENTIN
     Indication: Neuralgia
  6. CYCLOBENZAPRINE [Concomitant]
     Active Substance: CYCLOBENZAPRINE
     Indication: Muscle spasms
     Dosage: 10 MILLIGRAM
  7. PRAZOSIN [Concomitant]
     Active Substance: PRAZOSIN
     Indication: Nightmare

REACTIONS (8)
  - Migraine [Recovered/Resolved]
  - Rash [Recovered/Resolved]
  - Thirst [Recovered/Resolved]
  - Gastrooesophageal reflux disease [Recovered/Resolved]
  - Ear infection [Recovered/Resolved]
  - Palpitations [Recovered/Resolved]
  - Euphoric mood [Recovered/Resolved]
  - Dizziness [Recovered/Resolved]

NARRATIVE: CASE EVENT DATE: 20240201
